FAERS Safety Report 5565821-0 (Version None)
Quarter: 2007Q4

REPORT INFORMATION
  Report Type: 
  Country: None (occurrence: None)
  Receive Date: 20071213
  Receipt Date: 20071029
  Transmission Date: 20080405
  Serious: Yes (Other)
  Sender: FDA-Public Use
  Company Number: 2007S1000299

PATIENT
  Age: 60 Year
  Sex: Female

DRUGS (2)
  1. SORIATANE [Suspect]
     Indication: DRUG USE FOR UNKNOWN INDICATION
     Dosage: 20 MG;QD;PO
     Route: 048
  2. ASPIRIN [Concomitant]

REACTIONS (2)
  - PERICARDITIS [None]
  - PNEUMONIA [None]
